FAERS Safety Report 11756638 (Version 2)
Quarter: 2016Q2

REPORT INFORMATION
  Report Type: Report from Study
  Country: CA (occurrence: CA)
  Receive Date: 20151120
  Receipt Date: 20160526
  Transmission Date: 20160815
  Serious: Yes (Other)
  Sender: FDA-Public Use
  Company Number: CA-ROCHE-1232361

PATIENT
  Age: 37 Year
  Sex: Female
  Weight: 77.1 kg

DRUGS (10)
  1. RITUXAN [Suspect]
     Active Substance: RITUXIMAB
     Route: 042
     Dates: start: 20130418
  2. RITUXAN [Suspect]
     Active Substance: RITUXIMAB
     Dosage: FREQUENCY: DAY 1
     Route: 042
     Dates: start: 20130619
  3. RITUXAN [Suspect]
     Active Substance: RITUXIMAB
     Dosage: FREQUENCY : DAY 1
     Route: 042
     Dates: start: 20141216, end: 20151214
  4. DIPHENHYDRAMINE HCL [Concomitant]
     Active Substance: DIPHENHYDRAMINE HYDROCHLORIDE
     Route: 048
     Dates: start: 20120125
  5. ACETAMINOPHEN. [Concomitant]
     Active Substance: ACETAMINOPHEN
     Route: 048
     Dates: start: 20120125
  6. METHYLPREDNISOLONE. [Concomitant]
     Active Substance: METHYLPREDNISOLONE
     Route: 042
     Dates: start: 20120125
  7. RITUXAN [Suspect]
     Active Substance: RITUXIMAB
     Indication: GRANULOMATOSIS WITH POLYANGIITIS
     Route: 042
     Dates: start: 20120125
  8. PREDNISONE. [Concomitant]
     Active Substance: PREDNISONE
  9. ACTONEL [Concomitant]
     Active Substance: RISEDRONATE SODIUM
  10. IMURAN [Concomitant]
     Active Substance: AZATHIOPRINE

REACTIONS (4)
  - Granulomatosis with polyangiitis [Unknown]
  - Calculus bladder [Unknown]
  - Therapeutic response decreased [Unknown]
  - Bladder cancer [Unknown]

NARRATIVE: CASE EVENT DATE: 20130418
